FAERS Safety Report 20966073 (Version 2)
Quarter: 2024Q3

REPORT INFORMATION
  Report Type: Report from Study
  Country: US (occurrence: US)
  Receive Date: 20220616
  Receipt Date: 20240925
  Transmission Date: 20241017
  Serious: Yes (Hospitalization, Other)
  Sender: TEVA
  Company Number: US-TEVA-2022-US-2045033

PATIENT
  Age: 64 Year
  Sex: Female
  Weight: 95.25 kg

DRUGS (14)
  1. AUSTEDO [Suspect]
     Active Substance: DEUTETRABENAZINE
     Indication: Tardive dyskinesia
     Route: 048
  2. AUSTEDO [Suspect]
     Active Substance: DEUTETRABENAZINE
     Indication: Tardive dyskinesia
     Route: 048
     Dates: start: 20220505
  3. AUSTEDO [Suspect]
     Active Substance: DEUTETRABENAZINE
     Indication: Tardive dyskinesia
     Route: 048
     Dates: start: 20220604
  4. LAMICTAL [Concomitant]
     Active Substance: LAMOTRIGINE
     Indication: Product used for unknown indication
     Dosage: DOSAGE TEXT: 100MG 3.5 TABLETS TWICE DAILY (TOTAL 700MG PER DAY)
     Route: 065
  5. SIMVASTATIN [Concomitant]
     Active Substance: SIMVASTATIN
     Indication: Product used for unknown indication
     Dosage: DOSAGE TEXT: ONCE AT BEDTIME
     Route: 065
  6. BUPROPION [Concomitant]
     Active Substance: BUPROPION
     Indication: Product used for unknown indication
     Dosage: DOSAGE TEXT: ONE TABLET IN THE MORNING
     Route: 065
  7. LEXAPRO [Concomitant]
     Active Substance: ESCITALOPRAM OXALATE
     Indication: Product used for unknown indication
     Dosage: DOSAGE TEXT:  ONCE IN THE MORNING
     Route: 065
  8. SEROQUEL [Concomitant]
     Active Substance: QUETIAPINE FUMARATE
     Indication: Product used for unknown indication
     Dosage: DOSAGE TEXT: 200MG ONE TABLET AT BEDTIME
     Route: 065
  9. BENZTROPIN [Concomitant]
     Indication: Product used for unknown indication
     Dosage: DOSAGE TEXT: 1MG ONE TABLET AT BEDTIME
     Route: 065
  10. METFORMIN [Concomitant]
     Active Substance: METFORMIN HYDROCHLORIDE
     Indication: Product used for unknown indication
     Dosage: DOSAGE TEXT:  500MG ONE TABLET IN THE MORNING AND ONE TABLET AT BEDTIME
     Route: 065
  11. NAMENDA [Concomitant]
     Active Substance: MEMANTINE HYDROCHLORIDE
     Indication: Product used for unknown indication
     Dosage: DOSAGE TEXT: 10MG ONE TABLET IN THE MORNING AND ONE TABLET AT BEDTIME
     Route: 065
  12. HYDROXYZINE PAMOATE [Concomitant]
     Active Substance: HYDROXYZINE PAMOATE
     Indication: Product used for unknown indication
     Dosage: DOSAGE TEXT: 25MG ONCE DAILY AS NEEDED
     Route: 065
  13. LISINOPRIL [Suspect]
     Active Substance: LISINOPRIL
     Indication: Product used for unknown indication
     Dosage: DOSAGE TEXT: ONE TABLET IN THE MORNING
     Route: 065
  14. OXYCODONE [Concomitant]
     Active Substance: OXYCODONE
     Indication: Pain
     Dosage: TIME INTERVAL: 0.333 DAYS: DOSAGE TEXT: DOSE: 5/325MG
     Route: 065

REACTIONS (11)
  - Dyspnoea [Unknown]
  - Swollen tongue [Not Recovered/Not Resolved]
  - Speech disorder [Unknown]
  - Product dose omission issue [Unknown]
  - Somnolence [Recovered/Resolved]
  - Drug hypersensitivity [Recovered/Resolved]
  - Tremor [Unknown]
  - Hypersomnia [Unknown]
  - Dyskinesia [Unknown]
  - Coma [Unknown]
  - Fatigue [Unknown]

NARRATIVE: CASE EVENT DATE: 20220101
